FAERS Safety Report 7520077-4 (Version None)
Quarter: 2011Q2

REPORT INFORMATION
  Report Type: 
  Country: None (occurrence: None)
  Receive Date: 20110602
  Receipt Date: 20110525
  Transmission Date: 20111010
  Serious: Yes (Death)
  Sender: FDA-Public Use
  Company Number: US-ROCHE-779376

PATIENT
  Sex: Female

DRUGS (3)
  1. COUMADIN [Interacting]
     Route: 065
  2. CAPECITABINE [Interacting]
     Route: 065
  3. COPAXONE [Suspect]
     Indication: MULTIPLE SCLEROSIS
     Route: 058
     Dates: start: 20060427, end: 20091101

REACTIONS (2)
  - DRUG INTERACTION [None]
  - MALIGNANT NEOPLASM OF AMPULLA OF VATER [None]
